FAERS Safety Report 15673965 (Version 1)
Quarter: 2018Q4

REPORT INFORMATION
  Report Type: Spontaneous
  Country: JP (occurrence: JP)
  Receive Date: 20181129
  Receipt Date: 20181129
  Transmission Date: 20190205
  Serious: Yes (Other)
  Sender: FDA-Public Use
  Company Number: JP-ABBVIE-18K-087-2573545-00

PATIENT
  Sex: Female

DRUGS (1)
  1. MAVIRET [Suspect]
     Active Substance: GLECAPREVIR\PIBRENTASVIR
     Indication: EXPOSURE VIA BODY FLUID
     Route: 048

REACTIONS (3)
  - Paternal drugs affecting foetus [Unknown]
  - Exposure during pregnancy [Unknown]
  - Selective abortion [Unknown]
